FAERS Safety Report 23879731 (Version 1)
Quarter: 2024Q2

REPORT INFORMATION
  Report Type: Spontaneous
  Country: KR (occurrence: KR)
  Receive Date: 20240521
  Receipt Date: 20240521
  Transmission Date: 20240716
  Serious: Yes (Other)
  Sender: FDA-Public Use
  Company Number: KR-JNJFOC-20240540365

PATIENT
  Age: 3 Year
  Sex: Male

DRUGS (1)
  1. REMICADE [Suspect]
     Active Substance: INFLIXIMAB
     Indication: Multisystem inflammatory syndrome in children
     Route: 041

REACTIONS (5)
  - Terminal ileitis [Unknown]
  - Hepatomegaly [Recovered/Resolved]
  - Cytomegalovirus infection [Recovered/Resolved]
  - Lymphadenopathy [Unknown]
  - Off label use [Unknown]
